FAERS Safety Report 8428262-4 (Version None)
Quarter: 2012Q2

REPORT INFORMATION
  Report Type: 
  Country: None (occurrence: None)
  Receive Date: 20120611
  Receipt Date: 20120120
  Transmission Date: 20120825
  Serious: No
  Sender: FDA-Public Use
  Company Number: US-ASTRAZENECA-2011SE78203

PATIENT
  Sex: Female

DRUGS (1)
  1. PULMICORT FLEXHALER [Suspect]
     Indication: CHRONIC OBSTRUCTIVE PULMONARY DISEASE
     Dosage: TOTAL DAILY DOSAGE 1 PUFF TWICE DAILY
     Route: 055

REACTIONS (3)
  - DRUG DOSE OMISSION [None]
  - OFF LABEL USE [None]
  - MALAISE [None]
